FAERS Safety Report 8617411-0 (Version None)
Quarter: 2012Q3

REPORT INFORMATION
  Report Type: 
  Country: None (occurrence: None)
  Receive Date: 20120823
  Receipt Date: 20120810
  Transmission Date: 20120928
  Serious: Yes (Other)
  Sender: FDA-Public Use
  Company Number: CA-MYLANLABS-2012S1016754

PATIENT
  Sex: Male

DRUGS (5)
  1. ETOPOSIDE [Suspect]
     Route: 065
  2. CISPLATIN [Suspect]
     Route: 065
  3. IFOSFAMIDE [Suspect]
     Route: 065
  4. CYCLOPHOSPHAMIDE [Suspect]
     Route: 065
  5. VINCRISTINE [Suspect]
     Route: 065

REACTIONS (3)
  - ENCEPHALOPATHY [None]
  - DYSTONIA [None]
  - PARKINSONISM [None]
